FAERS Safety Report 5012812-4 (Version None)
Quarter: 2006Q2

REPORT INFORMATION
  Report Type: 
  Country: None (occurrence: None)
  Receive Date: 20060530
  Receipt Date: 20060323
  Transmission Date: 20061013
  Serious: Yes (Life-Threatening)
  Sender: FDA-Public Use
  Company Number: US-BRISTOL-MYERS SQUIBB COMPANY-13325451

PATIENT
  Age: 63 Year
  Sex: Male
  Weight: 69 kg

DRUGS (4)
  1. ERBITUX [Suspect]
     Indication: TONGUE NEOPLASM MALIGNANT STAGE UNSPECIFIED
     Dosage: LOADING DOSE OF 720 MG INITIATED AFTER PATIENT RECEIVED DOCETAXEL.  STOPPED AFTER 14 MINUTES.
     Route: 042
     Dates: start: 20060323, end: 20060323
  2. TAXOTERE [Suspect]
     Indication: TONGUE NEOPLASM MALIGNANT STAGE UNSPECIFIED
     Dosage: ADMINISTERED PRIOR TO CETUXIMAB INFUSION.  ADMINISTERED OVER 1 HOUR.
     Route: 042
     Dates: start: 20060323, end: 20060323
  3. BENADRYL [Concomitant]
     Indication: PREMEDICATION
     Route: 042
     Dates: start: 20060323, end: 20060323
  4. TYLENOL (GELTAB) [Concomitant]
     Indication: PREMEDICATION
     Route: 048
     Dates: start: 20060323, end: 20060323

REACTIONS (1)
  - INFUSION RELATED REACTION [None]
